FAERS Safety Report 7955060-8 (Version None)
Quarter: 2011Q4

REPORT INFORMATION
  Report Type: 
  Country: None (occurrence: None)
  Receive Date: 20111202
  Receipt Date: 20111129
  Transmission Date: 20120403
  Serious: Yes (Other)
  Sender: FDA-Public Use
  Company Number: US-BAYER-2011-115352

PATIENT
  Age: 38 Year
  Sex: Male

DRUGS (1)
  1. ALKA-SELTZER PLUS COLD + COUGH [Suspect]
     Dosage: 2 DF, PRN, BOTTLE COUNT 20S
     Route: 048
     Dates: start: 20111127, end: 20111128

REACTIONS (2)
  - ASTHMA [None]
  - DYSPNOEA [None]
